FAERS Safety Report 8939166 (Version 2)
Quarter: 2012Q4

REPORT INFORMATION
  Report Type: 
  Country: US (occurrence: US)
  Receive Date: 20121203
  Receipt Date: 20121217
  Transmission Date: 20130627
  Serious: Yes (Death)
  Sender: FDA-Public Use
  Company Number: US-ASTELLAS-2012US011516

PATIENT
  Sex: Female

DRUGS (4)
  1. PROGRAF [Suspect]
     Indication: LUNG TRANSPLANT
     Dosage: 3.5 mg, bid
     Route: 048
     Dates: start: 20090213, end: 20120902
  2. BACTRIM DS [Concomitant]
     Indication: PRODUCT USED FOR UNKNOWN INDICATION
     Dosage: UNK
     Route: 065
  3. IMURAN                             /00001501/ [Concomitant]
     Indication: PRODUCT USED FOR UNKNOWN INDICATION
     Dosage: 50 DF, Unknown/D
     Route: 065
  4. CELEXA                             /00582602/ [Concomitant]
     Indication: PRODUCT USED FOR UNKNOWN INDICATION
     Dosage: 20 DF, Unknown/D
     Route: 065

REACTIONS (2)
  - Off label use [Unknown]
  - Lung transplant rejection [Fatal]
